FAERS Safety Report 5121554-6 (Version None)
Quarter: 2006Q4

REPORT INFORMATION
  Report Type: 
  Country: None (occurrence: None)
  Receive Date: 20061006
  Receipt Date: 20060720
  Transmission Date: 20070319
  Serious: Yes (Death, Hospitalization)
  Sender: FDA-Public Use
  Company Number: FR-BAYER-200610678BFR

PATIENT
  Age: 55 Year
  Sex: Male

DRUGS (14)
  1. SORAFENIB [Suspect]
     Indication: RENAL CELL CARCINOMA STAGE UNSPECIFIED
     Dosage: UNIT DOSE: 200 MG
     Route: 048
     Dates: start: 20060609, end: 20060623
  2. SORAFENIB [Suspect]
     Dosage: UNIT DOSE: 200 MG
     Route: 048
     Dates: start: 20060506, end: 20060609
  3. SORAFENIB [Suspect]
     Dosage: UNIT DOSE: 200 MG
     Route: 048
     Dates: start: 20060403, end: 20060506
  4. EFFERALGAN CODEINE [Concomitant]
     Indication: UNEVALUABLE EVENT
     Route: 065
     Dates: start: 20060101, end: 20060409
  5. SKENAN [Concomitant]
     Indication: BACK PAIN
     Route: 065
     Dates: start: 20060410
  6. MORPHINE SULFATE [Concomitant]
     Indication: BACK PAIN
     Route: 065
     Dates: start: 20060410
  7. XANAX [Concomitant]
     Indication: ANXIETY
     Route: 065
     Dates: start: 20060410
  8. IMOVANE [Concomitant]
     Indication: INSOMNIA
     Route: 065
     Dates: start: 20060410
  9. FORLAX [Concomitant]
     Indication: CONSTIPATION
     Route: 065
     Dates: start: 20060410
  10. ZOFRAN [Concomitant]
     Indication: VOMITING
     Route: 065
     Dates: start: 20060410, end: 20060502
  11. PRIMPERAN TAB [Concomitant]
     Indication: VOMITING
     Route: 065
     Dates: start: 20060411, end: 20060502
  12. AREDIA [Concomitant]
     Indication: HYPERCALCAEMIA
     Route: 065
     Dates: start: 20060404, end: 20060404
  13. TRIFLUCAN [Concomitant]
     Indication: ORAL FUNGAL INFECTION
     Route: 065
     Dates: start: 20060420, end: 20060601
  14. FUNGISONE [Concomitant]
     Indication: UNEVALUABLE EVENT
     Route: 065
     Dates: start: 20060420

REACTIONS (11)
  - ALOPECIA [None]
  - ANOREXIA [None]
  - BACK PAIN [None]
  - CHILLS [None]
  - FATIGUE [None]
  - FEELING HOT [None]
  - GENERAL PHYSICAL HEALTH DETERIORATION [None]
  - NAUSEA [None]
  - PALMAR-PLANTAR ERYTHRODYSAESTHESIA SYNDROME [None]
  - STOMATITIS [None]
  - VOMITING [None]
